FAERS Safety Report 12289953 (Version 2)
Quarter: 2016Q2

REPORT INFORMATION
  Report Type: Spontaneous
  Country: US (occurrence: US)
  Receive Date: 20160421
  Receipt Date: 20160426
  Transmission Date: 20160815
  Serious: Yes (Hospitalization, Other)
  Sender: FDA-Public Use
  Company Number: US-RECKITT BENCKISER HEALTHCARE INT LIMITED-RB-84715-2016

PATIENT
  Age: 3 Year
  Sex: Female

DRUGS (1)
  1. DELSYM [Suspect]
     Active Substance: DEXTROMETHORPHAN
     Indication: PRODUCT USED FOR UNKNOWN INDICATION
     Dosage: 90 ML BOTTLE WAS EMPTY
     Route: 048

REACTIONS (4)
  - Ataxia [Recovered/Resolved]
  - Feeling drunk [Recovered/Resolved]
  - Condition aggravated [Recovered/Resolved]
  - Accidental exposure to product by child [Recovered/Resolved]
